FAERS Safety Report 6944897-X (Version None)
Quarter: 2010Q3

REPORT INFORMATION
  Report Type: 
  Country: None (occurrence: None)
  Receive Date: 20100827
  Receipt Date: 20100817
  Transmission Date: 20110219
  Serious: Yes (Death)
  Sender: FDA-Public Use
  Company Number: JP-BAXTER-2010BH021725

PATIENT
  Age: 50 Year
  Sex: Male
  Weight: 80 kg

DRUGS (2)
  1. ADVATE [Suspect]
     Indication: FACTOR VIII DEFICIENCY
     Route: 042
     Dates: start: 20081128, end: 20100623
  2. INTERFERON [Concomitant]
     Indication: HEPATIC CIRRHOSIS

REACTIONS (1)
  - HEPATIC FAILURE [None]
